FAERS Safety Report 7749995-9 (Version None)
Quarter: 2011Q3

REPORT INFORMATION
  Report Type: 
  Country: None (occurrence: None)
  Receive Date: 20110912
  Receipt Date: 20110902
  Transmission Date: 20111222
  Serious: Yes (Other)
  Sender: FDA-Public Use
  Company Number: 2011SP041801

PATIENT
  Age: 32 Year
  Sex: Female

DRUGS (3)
  1. TRIAZOLAM [Concomitant]
  2. MIRTAZAPINE [Suspect]
     Indication: DEPRESSION
     Dosage: 15 MG;QD;PO  : 30 MG;QD;PO
     Route: 048
     Dates: start: 20110519, end: 20110721
  3. ETIZOLAM [Concomitant]

REACTIONS (4)
  - WHITE BLOOD CELL COUNT INCREASED [None]
  - PYREXIA [None]
  - C-REACTIVE PROTEIN INCREASED [None]
  - BLOOD CREATINE PHOSPHOKINASE INCREASED [None]
